FAERS Safety Report 19046313 (Version 1)
Quarter: 2021Q1

REPORT INFORMATION
  Report Type: Spontaneous
  Country: GB (occurrence: GB)
  Receive Date: 20210322
  Receipt Date: 20210322
  Transmission Date: 20210420
  Serious: Yes (Hospitalization, Other)
  Sender: FDA-Public Use
  Company Number: GB-SA-2021SA082732

PATIENT
  Age: 71 Year
  Sex: Male

DRUGS (10)
  1. LONGTEC [Concomitant]
     Active Substance: OXYCODONE HYDROCHLORIDE
     Dosage: 5 MG, Q12H  28 TABLETS
     Route: 065
  2. LANSOPRAZOLE. [Concomitant]
     Active Substance: LANSOPRAZOLE
     Dosage: 30 MG, QD EACH MORNING
  3. LOPERAMIDE [Concomitant]
     Active Substance: LOPERAMIDE
     Dosage: 6 MG
  4. MIRTAZAPINE. [Concomitant]
     Active Substance: MIRTAZAPINE
     Dosage: 15 MG, HS AT NIGHT  28 TABLET
     Route: 065
  5. PARACETAMOL [Concomitant]
     Active Substance: ACETAMINOPHEN
     Dosage: 1000 MG EVERY 4?6 HOURS, UP TO FOUR TIMES A DAY
     Route: 065
  6. OPTIVE [Concomitant]
     Active Substance: CARBOXYMETHYLCELLULOSE SODIUM\GLYCERIN
     Dosage: AS DIRECTED FUSION, ALLERGAN LIMITED, 10ML
     Route: 065
  7. NITROFURANTOIN. [Concomitant]
     Active Substance: NITROFURANTOIN
     Dosage: 100 MG, BID 14 CAPSULES
     Dates: start: 20200910
  8. FOLIC ACID. [Concomitant]
     Active Substance: FOLIC ACID
     Dosage: 5 MG, QD
     Route: 065
  9. CLOPIDOGREL BISULFATE. [Suspect]
     Active Substance: CLOPIDOGREL BISULFATE
     Dosage: 75 MG, QD
     Route: 065
  10. LONGTEC [Concomitant]
     Active Substance: OXYCODONE HYDROCHLORIDE
     Dosage: UNK UNK, PRN 5MG/5ML. 2.5ML ? 5ML (MAXIMUM FOUR TIMES A DAY), 250ML SUGAR FREE. NOT TAKING

REACTIONS (2)
  - Urosepsis [Unknown]
  - Haematuria [Recovered/Resolved]
